FAERS Safety Report 11022191 (Version 1)
Quarter: 2015Q2

REPORT INFORMATION
  Report Type: Spontaneous
  Country: GB (occurrence: GB)
  Receive Date: 20150413
  Receipt Date: 20150413
  Transmission Date: 20150821
  Serious: Yes (Other)
  Sender: FDA-Public Use
  Company Number: GB-BAYER-2015-117425

PATIENT
  Age: 37 Year
  Sex: Female

DRUGS (1)
  1. MIRENA [Suspect]
     Active Substance: LEVONORGESTREL
     Indication: MENORRHAGIA
     Dosage: 20 MCG/24HR, CONT
     Route: 015
     Dates: start: 201402, end: 201503

REACTIONS (6)
  - Weight increased [None]
  - Device expulsion [None]
  - Genital haemorrhage [Recovering/Resolving]
  - Depression [Recovering/Resolving]
  - Dyspareunia [None]
  - Loss of libido [Recovering/Resolving]

NARRATIVE: CASE EVENT DATE: 201503
